FAERS Safety Report 7438196-X (Version None)
Quarter: 2011Q2

REPORT INFORMATION
  Report Type: 
  Country: None (occurrence: None)
  Receive Date: 20110426
  Receipt Date: 20110321
  Transmission Date: 20111010
  Serious: Yes (Hospitalization, Other)
  Sender: FDA-Public Use
  Company Number: US-BAYER-2010-002139

PATIENT
  Age: 21 Year
  Sex: Female
  Weight: 111.11 kg

DRUGS (2)
  1. YASMIN [Suspect]
     Indication: POLYCYSTIC OVARIES
     Dosage: UNK
  2. TAILENOL [Concomitant]

REACTIONS (4)
  - GALLBLADDER INJURY [None]
  - INJURY [None]
  - BILE DUCT STONE [None]
  - CHOLECYSTITIS [None]
